FAERS Safety Report 9189253 (Version 1)
Quarter: 2013Q1

REPORT INFORMATION
  Report Type: Spontaneous
  Country: US (occurrence: None)
  Receive Date: 20130321
  Receipt Date: 20130321
  Transmission Date: 20140127
  Serious: Yes (Other)
  Sender: FDA-Public Use
  Company Number: None

PATIENT
  Age: 58 Year
  Sex: Female
  Weight: 95.26 kg

DRUGS (1)
  1. RESTASIS [Suspect]
     Indication: DRY EYE
     Dosage: 1-2 DROPS  EVERY 12 HOURS TOP
     Route: 061
     Dates: start: 20130103, end: 20130128

REACTIONS (7)
  - Instillation site pain [None]
  - Instillation site erythema [None]
  - Instillation site pain [None]
  - Instillation site pruritus [None]
  - Vision blurred [None]
  - Ocular discomfort [None]
  - Condition aggravated [None]
